FAERS Safety Report 8427754-1 (Version None)
Quarter: 2012Q2

REPORT INFORMATION
  Report Type: 
  Country: None (occurrence: None)
  Receive Date: 20120611
  Receipt Date: 20120601
  Transmission Date: 20120825
  Serious: Yes (Hospitalization)
  Sender: FDA-Public Use
  Company Number: DE-BAXTER-2012BH006369

PATIENT
  Sex: Male
  Weight: 62.6 kg

DRUGS (15)
  1. EXTRANEAL [Suspect]
  2. TORSEMIDE [Concomitant]
     Route: 048
  3. DIGITOXIN TAB [Concomitant]
     Route: 048
  4. METAMIZOLE [Concomitant]
     Route: 048
  5. LERCANIDIPINE [Concomitant]
     Route: 048
  6. IRBESARTAN [Concomitant]
     Route: 048
  7. SPIRONOLACTONE [Concomitant]
     Route: 065
  8. ALFACALCIDOL [Concomitant]
     Dosage: 0.25 UG
     Route: 048
  9. ZOLPIDEM [Concomitant]
     Route: 048
  10. EXTRANEAL [Suspect]
     Indication: PERITONEAL DIALYSIS
     Route: 033
     Dates: start: 20120302, end: 20120303
  11. METOPROLOL SUCCINATE [Concomitant]
     Route: 048
  12. GLUCOSE FRESENIUS [Concomitant]
     Route: 065
  13. PANTOPRAZOLE [Concomitant]
     Route: 048
  14. CALCIUMACETAT [Concomitant]
     Route: 048
  15. BENFOTIAMIN [Concomitant]
     Dosage: FOR 6 WEEKS
     Route: 048

REACTIONS (5)
  - ABDOMINAL PAIN [None]
  - SPEECH DISORDER [None]
  - FALL [None]
  - NEUROLOGICAL DECOMPENSATION [None]
  - FLUID RETENTION [None]
